FAERS Safety Report 23783113 (Version 1)
Quarter: 2024Q2

REPORT INFORMATION
  Report Type: Spontaneous
  Country: A1 (occurrence: US)
  Receive Date: 20240425
  Receipt Date: 20240425
  Transmission Date: 20240716
  Serious: No
  Sender: FDA-Public Use
  Company Number: US-Amphastar Pharmaceuticals, Inc.-2154648

PATIENT
  Sex: Female

DRUGS (1)
  1. BAQSIMI [Suspect]
     Active Substance: GLUCAGON
     Indication: Hypoglycaemia
     Route: 045
     Dates: start: 20230518

REACTIONS (1)
  - Rhinalgia [Recovered/Resolved]
